FAERS Safety Report 15384385 (Version 1)
Quarter: 2018Q3

REPORT INFORMATION
  Report Type: Spontaneous
  Country: US (occurrence: US)
  Receive Date: 20180907
  Receipt Date: 20180907
  Transmission Date: 20181010
  Serious: Yes (Hospitalization, Disabling, Other)
  Sender: FDA-Public Use
  Company Number: None

PATIENT
  Age: 41 Year
  Sex: Male
  Weight: 103.5 kg

DRUGS (11)
  1. CLOPIDOGREL [Concomitant]
     Active Substance: CLOPIDOGREL BISULFATE
  2. VITAMIN D [Concomitant]
     Active Substance: CHOLECALCIFEROL
  3. LYRICA [Concomitant]
     Active Substance: PREGABALIN
  4. INVOKANA [Suspect]
     Active Substance: CANAGLIFLOZIN
     Indication: DIABETES MELLITUS
     Dosage: ?          QUANTITY:90 TABLET(S);?
     Route: 048
     Dates: start: 20130101, end: 20160101
  5. PREBIOTIC [Concomitant]
  6. PRAVASTATIN. [Concomitant]
     Active Substance: PRAVASTATIN
  7. PROBIOTIC [Concomitant]
     Active Substance: PROBIOTICS NOS
  8. ATENOLOL. [Concomitant]
     Active Substance: ATENOLOL
  9. POTASSIUM CL [Concomitant]
     Active Substance: POTASSIUM CHLORIDE
  10. OMEPRAZOLE. [Concomitant]
     Active Substance: OMEPRAZOLE
  11. VITAMIN B [Concomitant]
     Active Substance: VITAMIN B

REACTIONS (4)
  - Medical device implantation [None]
  - Foot operation [None]
  - Musculoskeletal disorder [None]
  - Adverse event [None]

NARRATIVE: CASE EVENT DATE: 20150415
